FAERS Safety Report 6230338-7 (Version None)
Quarter: 2009Q2

REPORT INFORMATION
  Report Type: 
  Country: None (occurrence: None)
  Receive Date: 20090611
  Receipt Date: 20090603
  Transmission Date: 20091009
  Serious: Yes (Other)
  Sender: FDA-Public Use
  Company Number: OSCN-PR-0906L-0287

PATIENT
  Age: 55 Year
  Sex: Male

DRUGS (8)
  1. OMNISCAN [Suspect]
     Indication: DRUG USE FOR UNKNOWN INDICATION
     Dosage: 17 ML, SINGLE DOSE
  2. PANTOPRAZOLE SODIUM [Concomitant]
  3. SEVELAMER [Concomitant]
  4. ASPIRIN [Concomitant]
  5. FOLIC ACID [Concomitant]
  6. WARFARIN SODIUM [Concomitant]
  7. BRIMONIDINE EYE-DROPS [Concomitant]
  8. TIMOLOL-DORZOLAMIDE EYE-DROPS [Concomitant]

REACTIONS (1)
  - NEPHROGENIC SYSTEMIC FIBROSIS [None]
